FAERS Safety Report 24868675 (Version 1)
Quarter: 2025Q1

REPORT INFORMATION
  Report Type: Spontaneous
  Country: US (occurrence: None)
  Receive Date: 20250121
  Receipt Date: 20250121
  Transmission Date: 20250408
  Serious: No
  Sender: FDA-CTU
  Company Number: None

PATIENT
  Sex: Male

DRUGS (3)
  1. DASATINIB [Suspect]
     Active Substance: DASATINIB
     Indication: Chronic myeloid leukaemia
     Dosage: FREQUENCY : DAILY;?
     Route: 048
     Dates: start: 202411
  2. SPRYCEL [Concomitant]
     Active Substance: DASATINIB
  3. DU PIXENT PEN [Concomitant]

REACTIONS (2)
  - Pulmonary oedema [None]
  - Neurodermatitis [None]
